FAERS Safety Report 6317541-2 (Version None)
Quarter: 2009Q3

REPORT INFORMATION
  Report Type: 
  Country: None (occurrence: None)
  Receive Date: 20090821
  Receipt Date: 20090813
  Transmission Date: 20100115
  Serious: Yes (Other)
  Sender: FDA-Public Use
  Company Number: BR-ROCHE-645747

PATIENT
  Sex: Female
  Weight: 74 kg

DRUGS (6)
  1. DIAZEPAM [Suspect]
     Indication: DRUG USE FOR UNKNOWN INDICATION
     Route: 065
     Dates: start: 20080101
  2. LEXOTAN [Suspect]
     Indication: DRUG USE FOR UNKNOWN INDICATION
     Dosage: FREQUENCY: OCCASSIONALLY, ROUTE, FORM, INDICATION AND BATCH NUMBER: UNKNOWN
     Route: 065
     Dates: end: 20080101
  3. LEXOTAN [Suspect]
     Indication: INSOMNIA
     Dosage: HALF TABLET OF 6 MG AT NIGHT
     Route: 065
     Dates: start: 20090703, end: 20090701
  4. BROMAZEPAM [Suspect]
     Indication: DRUG USE FOR UNKNOWN INDICATION
     Route: 065
     Dates: start: 20080101
  5. LOSARTAN [Concomitant]
     Indication: HYPERTENSION
  6. PROPRANOLOL [Concomitant]
     Indication: HYPERTENSION

REACTIONS (3)
  - CEREBROVASCULAR ACCIDENT [None]
  - DRUG INEFFECTIVE [None]
  - NO ADVERSE EVENT [None]
